FAERS Safety Report 6340621-2 (Version None)
Quarter: 2009Q3

REPORT INFORMATION
  Report Type: 
  Country: None (occurrence: None)
  Receive Date: 20090904
  Receipt Date: 20090804
  Transmission Date: 20100115
  Serious: No
  Sender: FDA-Public Use
  Company Number: US-BAYER-200929402NA

PATIENT
  Age: 32 Year
  Sex: Female
  Weight: 60 kg

DRUGS (1)
  1. YAZ [Suspect]
     Indication: CONTRACEPTION
     Dosage: TOTAL DAILY DOSE: 1 DF  UNIT DOSE: 1 DF
     Dates: start: 20090726

REACTIONS (1)
  - VAGINAL HAEMORRHAGE [None]
